FAERS Safety Report 8503130-8 (Version None)
Quarter: 2012Q3

REPORT INFORMATION
  Report Type: 
  Country: None (occurrence: None)
  Receive Date: 20120711
  Receipt Date: 20120709
  Transmission Date: 20120928
  Serious: No
  Sender: FDA-Public Use
  Company Number: US-PFIZER INC-2012164351

PATIENT
  Sex: Female
  Weight: 102 kg

DRUGS (3)
  1. ALPRAZOLAM [Suspect]
     Indication: ANXIETY
     Dosage: 3 MG (1 AND HALF TABLETS OF 2MG) , 3X/DAY
     Route: 048
     Dates: start: 20120706
  2. TRICOR [Concomitant]
     Indication: BLOOD TRIGLYCERIDES
  3. TRICOR [Concomitant]
     Indication: BLOOD VISCOSITY INCREASED
     Dosage: UNK

REACTIONS (4)
  - PANIC ATTACK [None]
  - DRUG INEFFECTIVE [None]
  - FEELING ABNORMAL [None]
  - ANXIETY [None]
